FAERS Safety Report 8533365-X (Version None)
Quarter: 2012Q3

REPORT INFORMATION
  Report Type: 
  Country: None (occurrence: None)
  Receive Date: 20120724
  Receipt Date: 20120717
  Transmission Date: 20120928
  Serious: Yes (Hospitalization)
  Sender: FDA-Public Use
  Company Number: PHHY2012BR062554

PATIENT
  Age: 12 Year
  Sex: Male

DRUGS (1)
  1. RITALIN LA [Suspect]
     Dosage: 30 MG, UNK

REACTIONS (5)
  - AGITATION [None]
  - HYPERHIDROSIS [None]
  - FEELING COLD [None]
  - DRUG INTOLERANCE [None]
  - DECREASED APPETITE [None]
